FAERS Safety Report 26193407 (Version 1)
Quarter: 2025Q4

REPORT INFORMATION
  Report Type: Report from Study
  Country: None (occurrence: EU)
  Receive Date: 20251223
  Receipt Date: 20251223
  Transmission Date: 20260118
  Serious: Yes (Other)
  Sender: ALNYLAM PHARMACEUTICALS
  Company Number: EU-ALNYLAM PHARMACEUTICALS, INC.-ALN-2025-008127

PATIENT
  Weight: 72 kg

DRUGS (4)
  1. GIVLAARI [Suspect]
     Active Substance: GIVOSIRAN SODIUM
     Indication: Product used for unknown indication
     Dosage: 178 MILLIGRAM, MONTHLY (EVERY 4 WEEKS)
  2. FOLATE SODIUM [Concomitant]
     Active Substance: FOLATE SODIUM
     Indication: Porphyria
     Dosage: 2.5 MILLIGRAM, QD
     Route: 061
  3. VITAMIN B12 [Concomitant]
     Active Substance: CYANOCOBALAMIN
     Indication: Porphyria
     Dosage: 0.5 MILLIGRAM, QD
     Route: 061
  4. VITAMIN B6 [Concomitant]
     Active Substance: PYRIDOXINE HYDROCHLORIDE
     Indication: Porphyria
     Dosage: 25 MILLIGRAM, QD
     Route: 061

REACTIONS (1)
  - Graves^ disease [Not Recovered/Not Resolved]
